FAERS Safety Report 10461702 (Version 2)
Quarter: 2015Q4

REPORT INFORMATION
  Report Type: Report from Study
  Country: US (occurrence: US)
  Receive Date: 20140918
  Receipt Date: 20151014
  Transmission Date: 20160304
  Serious: Yes (Hospitalization)
  Sender: FDA-Public Use
  Company Number: US-PURDUE-USA-2014-0117391

PATIENT
  Age: 48 Year
  Sex: Female

DRUGS (5)
  1. OXYCONTIN [Suspect]
     Active Substance: OXYCODONE HYDROCHLORIDE
     Indication: PROCEDURAL PAIN
  2. OXYCODONE [Concomitant]
     Active Substance: OXYCODONE
     Indication: BREAKTHROUGH PAIN
     Route: 048
  3. OXYCONTIN [Suspect]
     Active Substance: OXYCODONE HYDROCHLORIDE
     Indication: NECK PAIN
     Dosage: UNK
     Route: 048
     Dates: start: 2008
  4. OXYCONTIN [Suspect]
     Active Substance: OXYCODONE HYDROCHLORIDE
     Indication: INTERVERTEBRAL DISC PROTRUSION
  5. OXYCONTIN [Suspect]
     Active Substance: OXYCODONE HYDROCHLORIDE
     Indication: BACK PAIN
     Dosage: 2X 80 MG, BID
     Route: 048
     Dates: start: 20140809

REACTIONS (11)
  - Inappropriate schedule of drug administration [Unknown]
  - Wrist fracture [Unknown]
  - Lower limb fracture [Unknown]
  - Drug effect decreased [Unknown]
  - Drug tolerance [Unknown]
  - Neck pain [Unknown]
  - Back disorder [Unknown]
  - Pelvic fracture [Unknown]
  - Unevaluable event [Unknown]
  - Road traffic accident [Unknown]
  - Sciatica [Unknown]

NARRATIVE: CASE EVENT DATE: 201407
